FAERS Safety Report 14435007 (Version 2)
Quarter: 2018Q4

REPORT INFORMATION
  Report Type: Spontaneous
  Country: CA (occurrence: CA)
  Receive Date: 20180125
  Receipt Date: 20181109
  Transmission Date: 20190204
  Serious: Yes (Hospitalization, Other)
  Sender: FDA-Public Use
  Company Number: CA-ROCHE-2061105

PATIENT
  Age: 48 Year
  Sex: Female
  Weight: 106 kg

DRUGS (47)
  1. FILGRASTIM [Suspect]
     Active Substance: FILGRASTIM
     Indication: SUPPORTIVE CARE
     Dosage: 480 MUG, 1 DAY?REGIMEN #1
     Route: 065
  2. TRASTUZUMAB. [Suspect]
     Active Substance: TRASTUZUMAB
     Dosage: REGIMEN #2?DURATION 1 DAY
     Route: 065
  3. DEXAMETHASONE. [Suspect]
     Active Substance: DEXAMETHASONE
     Dosage: DURATION 2 DAYS?REGIMEN #2
     Route: 048
  4. ONDANSETRON [Suspect]
     Active Substance: ONDANSETRON
     Dosage: DURATION 1 DAY?REGIMEN #4
     Route: 048
  5. FILGRASTIM [Suspect]
     Active Substance: FILGRASTIM
     Dosage: 480 MUG?REGIMEN #3
     Route: 065
  6. PEGFILGRASTIM [Suspect]
     Active Substance: PEGFILGRASTIM
     Dosage: DURATION 1 DAY?REGIMEN #4
     Route: 058
  7. APREPITANT. [Suspect]
     Active Substance: APREPITANT
     Dosage: REGIMEN #10?DURATION 2 DAYS
     Route: 048
  8. DOXORUBICIN [Suspect]
     Active Substance: DOXORUBICIN
     Indication: BREAST CANCER
     Dosage: REGIMEN #1?DURATION 43 DAYS
     Route: 042
  9. LEVOFLOXACIN. [Suspect]
     Active Substance: LEVOFLOXACIN
     Indication: TARDIVE DYSKINESIA
     Dosage: REGIMEN #1
     Route: 048
  10. METOCLOPRAMIDE. [Suspect]
     Active Substance: METOCLOPRAMIDE
     Indication: TARDIVE DYSKINESIA
     Dosage: REGIMEN #1
     Route: 048
  11. PACLITAXEL. [Suspect]
     Active Substance: PACLITAXEL
     Dosage: REGIMEN #2, 1 DAY
     Route: 042
  12. RANITIDINE. [Suspect]
     Active Substance: RANITIDINE
     Indication: TARDIVE DYSKINESIA
     Dosage: REGIMEN #1
     Route: 048
  13. TRASTUZUMAB. [Suspect]
     Active Substance: TRASTUZUMAB
     Indication: TARDIVE DYSKINESIA
     Dosage: REGIMEN #1 ?DURATION 1 DAY
     Route: 065
  14. TRASTUZUMAB. [Suspect]
     Active Substance: TRASTUZUMAB
     Dosage: REGIMEN #3?DURATION 1 DAY
     Route: 065
  15. DEXAMETHASONE. [Suspect]
     Active Substance: DEXAMETHASONE
     Indication: SUPPORTIVE CARE
     Dosage: DURATION 2 DAYS?REGIMEN #1
     Route: 048
  16. ONDANSETRON [Suspect]
     Active Substance: ONDANSETRON
     Dosage: DURATION 1 DAY?REGIMEN #8
     Route: 048
  17. FILGRASTIM [Suspect]
     Active Substance: FILGRASTIM
     Dosage: 480 MUG,?REGIMEN #2
     Route: 065
  18. PEGFILGRASTIM [Suspect]
     Active Substance: PEGFILGRASTIM
     Dosage: DURATION 1 DAY?REGIMEN #3
     Route: 058
  19. PEGFILGRASTIM [Suspect]
     Active Substance: PEGFILGRASTIM
     Dosage: DURATION 1 DAY?REGIMEN #5
     Route: 058
  20. APREPITANT. [Suspect]
     Active Substance: APREPITANT
     Indication: SUPPORTIVE CARE
     Dosage: REGIMEN #1?DURATION 2 DAYS
     Route: 048
  21. APREPITANT. [Suspect]
     Active Substance: APREPITANT
     Dosage: REGIMEN #5?DURATION 2 DAY
     Route: 048
  22. APREPITANT. [Suspect]
     Active Substance: APREPITANT
     Dosage: REGIMEN #9?DURATION 1 DAYS
     Route: 048
  23. ENOXAPARIN [Suspect]
     Active Substance: ENOXAPARIN
     Indication: TARDIVE DYSKINESIA
     Dosage: REGIMEN #1
     Route: 058
  24. ONDANSETRON [Suspect]
     Active Substance: ONDANSETRON
     Dosage: DURATION 1 DAY?REGIMEN #5
     Route: 048
  25. ONDANSETRON [Suspect]
     Active Substance: ONDANSETRON
     Dosage: DURATION 1 DAY?REGIMEN #6
     Route: 048
  26. PACLITAXEL. [Suspect]
     Active Substance: PACLITAXEL
     Indication: BREAST CANCER
     Dosage: REGIMEN #1, 15 DAYS
     Route: 042
  27. PEGFILGRASTIM [Suspect]
     Active Substance: PEGFILGRASTIM
     Indication: SUPPORTIVE CARE
     Dosage: DURATION 1 DAY?REGIMEN #1
     Route: 058
  28. APREPITANT. [Suspect]
     Active Substance: APREPITANT
     Dosage: REGIMEN #2?DURATION 1 DAY
     Route: 048
  29. APREPITANT. [Suspect]
     Active Substance: APREPITANT
     Dosage: REGIMEN #3?DURATION 1 DAY
     Route: 048
  30. APREPITANT. [Suspect]
     Active Substance: APREPITANT
     Dosage: REGIMEN #4?DURATION 1 DAY
     Route: 048
  31. DEXAMETHASONE. [Suspect]
     Active Substance: DEXAMETHASONE
     Dosage: DURATION 2 DAYS?REGIMEN #4
     Route: 048
  32. LORAZEPAM. [Suspect]
     Active Substance: LORAZEPAM
     Indication: TARDIVE DYSKINESIA
     Dosage: REGIMEN #1
     Route: 048
  33. ONDANSETRON [Suspect]
     Active Substance: ONDANSETRON
     Indication: SUPPORTIVE CARE
     Dosage: DURATION 1 DAY?REGIMEN #1
     Route: 048
  34. ONDANSETRON [Suspect]
     Active Substance: ONDANSETRON
     Dosage: DURATION 1 DAY?REGIMEN #7
     Route: 048
  35. PACLITAXEL. [Suspect]
     Active Substance: PACLITAXEL
     Dosage: REGIMEN #3
     Route: 042
  36. PROCYTOX [Suspect]
     Active Substance: CYCLOPHOSPHAMIDE
     Indication: BREAST CANCER
     Dosage: REGIMEN #1?POWDER FOR SOLUTION FOR INJECTION OR INFUSION, 2000 MG?DURATION 57 DAYS
     Route: 042
  37. TRASTUZUMAB. [Suspect]
     Active Substance: TRASTUZUMAB
     Dosage: REGIMEN #4?DURATION 1 DAY
     Route: 065
  38. APREPITANT. [Suspect]
     Active Substance: APREPITANT
     Dosage: REGIMEN #6?DURATION 2 DAYS
     Route: 048
  39. APREPITANT. [Suspect]
     Active Substance: APREPITANT
     Dosage: REGIMEN #8?DURATION 2 DAYS
     Route: 048
  40. APREPITANT. [Suspect]
     Active Substance: APREPITANT
     Dosage: REGIMEN #11?DURATION 2 DAYS
     Route: 048
  41. DEXAMETHASONE. [Suspect]
     Active Substance: DEXAMETHASONE
     Dosage: DURATION 2 DAYS?REGIMEN #3
     Route: 048
  42. ONDANSETRON [Suspect]
     Active Substance: ONDANSETRON
     Dosage: DURATION 1 DAY?REGIMEN #2
     Route: 048
  43. TYLENOL WITH CODEINE [Suspect]
     Active Substance: ACETAMINOPHEN\CODEINE PHOSPHATE
     Indication: TARDIVE DYSKINESIA
     Dosage: REGIMEN #1
     Route: 065
  44. PEGFILGRASTIM [Suspect]
     Active Substance: PEGFILGRASTIM
     Dosage: DURATION 1 DAY?REGIMEN #2
     Route: 058
  45. APREPITANT. [Suspect]
     Active Substance: APREPITANT
     Dosage: REGIMEN #7?DURATION 2 DAYS
     Route: 048
  46. BETAMETHASONE. [Suspect]
     Active Substance: BETAMETHASONE
     Indication: TARDIVE DYSKINESIA
     Dosage: REGIMEN #1
     Route: 065
  47. ONDANSETRON [Suspect]
     Active Substance: ONDANSETRON
     Dosage: DURATION 1 DAY?REGIMEN #3
     Route: 048

REACTIONS (10)
  - Cough [Recovered/Resolved]
  - Dyspnoea [Recovered/Resolved]
  - Hypoxia [Recovered/Resolved]
  - Nausea [Recovered/Resolved]
  - Gastrointestinal disorder [Recovered/Resolved]
  - Fatigue [Recovered/Resolved]
  - Pyrexia [Recovered/Resolved]
  - Computerised tomogram thorax abnormal [Recovered/Resolved]
  - Atelectasis [Recovered/Resolved]
  - Rash [Recovered/Resolved]
